FAERS Safety Report 4974692-2 (Version None)
Quarter: 2006Q2

REPORT INFORMATION
  Report Type: 
  Country: None (occurrence: None)
  Receive Date: 20060417
  Receipt Date: 20050803
  Transmission Date: 20061013
  Serious: Yes (Hospitalization, Other)
  Sender: FDA-Public Use
  Company Number: US-MERCK-0508USA01148

PATIENT
  Age: 68 Year
  Sex: Female
  Weight: 93 kg

DRUGS (2)
  1. VIOXX [Suspect]
     Indication: BONE PAIN
     Route: 048
     Dates: start: 20020801, end: 20040101
  2. [THERAPY UNSPECIFIED] [Concomitant]
     Route: 048

REACTIONS (16)
  - ABDOMINAL PAIN [None]
  - ANAEMIA [None]
  - CEREBROVASCULAR ACCIDENT [None]
  - CHEST PAIN [None]
  - CONFUSIONAL STATE [None]
  - CONVULSION [None]
  - DIZZINESS [None]
  - DYSPEPSIA [None]
  - DYSPNOEA [None]
  - ENCEPHALOMALACIA [None]
  - HEADACHE [None]
  - HEMIANOPIA HOMONYMOUS [None]
  - NEOPLASM [None]
  - PEPTIC ULCER [None]
  - TRANSIENT ISCHAEMIC ATTACK [None]
  - WEIGHT DECREASED [None]
